FAERS Safety Report 6146123-0 (Version None)
Quarter: 2009Q2

REPORT INFORMATION
  Report Type: 
  Country: None (occurrence: None)
  Receive Date: 20090407
  Receipt Date: 20090331
  Transmission Date: 20091009
  Serious: Yes (Other)
  Sender: FDA-Public Use
  Company Number: SE-NOVOPROD-281378

PATIENT
  Sex: Male
  Weight: 18.2 kg

DRUGS (1)
  1. NORDITROPIN [Suspect]
     Indication: SMALL FOR DATES BABY
     Dosage: .6 MG, QD
     Dates: start: 20071206, end: 20090129

REACTIONS (1)
  - OSTEOCHONDROSIS [None]
